FAERS Safety Report 24980100 (Version 1)
Quarter: 2025Q1

REPORT INFORMATION
  Report Type: Report from Study
  Country: DE (occurrence: DE)
  Receive Date: 20250218
  Receipt Date: 20250218
  Transmission Date: 20250409
  Serious: No
  Sender: ROCHE
  Company Number: DE-ROCHE-10000205854

PATIENT
  Age: 63 Year
  Sex: Female

DRUGS (10)
  1. OCRELIZUMAB [Suspect]
     Active Substance: OCRELIZUMAB
     Indication: Relapsing multiple sclerosis
     Route: 040
     Dates: start: 20230810
  2. OCRELIZUMAB [Suspect]
     Active Substance: OCRELIZUMAB
     Route: 040
     Dates: start: 20240222
  3. METHYLPREDNISOLUT [Concomitant]
     Route: 040
     Dates: start: 20240808, end: 20240808
  4. METHYLPREDNISOLUT [Concomitant]
     Route: 040
     Dates: start: 20250207, end: 20250207
  5. METHYLPREDNISOLUT [Concomitant]
     Route: 040
     Dates: start: 20240222, end: 20240222
  6. DIMETHINDENE MALEATE [Concomitant]
     Active Substance: DIMETHINDENE MALEATE
     Route: 040
     Dates: start: 20230810, end: 20230810
  7. DIMETHINDENE MALEATE [Concomitant]
     Active Substance: DIMETHINDENE MALEATE
     Route: 040
     Dates: start: 20230824, end: 20230824
  8. DIMETHINDENE MALEATE [Concomitant]
     Active Substance: DIMETHINDENE MALEATE
     Route: 040
     Dates: start: 20240222, end: 20240222
  9. DIMETHINDENE MALEATE [Concomitant]
     Active Substance: DIMETHINDENE MALEATE
     Route: 040
     Dates: start: 20240808, end: 20240808
  10. DIMETHINDENE MALEATE [Concomitant]
     Active Substance: DIMETHINDENE MALEATE
     Route: 040
     Dates: start: 20250207, end: 20250207

REACTIONS (1)
  - COVID-19 [Recovered/Resolved]

NARRATIVE: CASE EVENT DATE: 20241003
